FAERS Safety Report 6808508-6 (Version None)
Quarter: 2010Q2

REPORT INFORMATION
  Report Type: 
  Country: None (occurrence: None)
  Receive Date: 20100629
  Receipt Date: 20090616
  Transmission Date: 20101027
  Serious: No
  Sender: FDA-Public Use
  Company Number: US-PFIZER INC-2009229238

PATIENT
  Sex: Male
  Weight: 75 kg

DRUGS (9)
  1. ZYVOX [Suspect]
     Indication: STAPHYLOCOCCAL INFECTION
     Dosage: FREQUENCY: EVERY DAY;
     Route: 048
     Dates: start: 20061020, end: 20061103
  2. SYNTHROID [Concomitant]
     Dosage: UNK
  3. FLUOXETINE [Concomitant]
     Dosage: UNK
  4. FOLIC ACID [Concomitant]
     Dosage: UNK
  5. VITAMIN B-12 [Concomitant]
     Dosage: UNK
  6. PEPCID [Concomitant]
     Dosage: UNK
  7. METOPROLOL [Concomitant]
     Dosage: UNK
  8. METFORMIN [Concomitant]
     Dosage: UNK
  9. BACLOFEN [Concomitant]
     Dosage: UNK

REACTIONS (1)
  - DIARRHOEA [None]
